FAERS Safety Report 9610929 (Version 2)
Quarter: 2013Q4

REPORT INFORMATION
  Report Type: Spontaneous
  Country: US (occurrence: US)
  Receive Date: 20131009
  Receipt Date: 20131010
  Transmission Date: 20140711
  Serious: Yes (Other)
  Sender: FDA-Public Use
  Company Number: US-GLAXOSMITHKLINE-A1044379A

PATIENT
  Age: 49 Year
  Sex: Female

DRUGS (11)
  1. BENLYSTA [Suspect]
     Indication: SYSTEMIC LUPUS ERYTHEMATOSUS
     Route: 042
     Dates: start: 20130924
  2. LEVOXYL [Concomitant]
  3. DYAZIDE [Concomitant]
  4. PLAQUENIL [Concomitant]
  5. TORSEMIDE [Concomitant]
  6. LIMBREL [Concomitant]
  7. VITAMIN D [Concomitant]
  8. ZANTAC [Concomitant]
  9. COQ10 [Concomitant]
  10. ASPIRIN [Concomitant]
  11. INDERAL [Concomitant]

REACTIONS (18)
  - Pericarditis [Not Recovered/Not Resolved]
  - Meningitis [Unknown]
  - Vision blurred [Unknown]
  - Dizziness [Unknown]
  - Nausea [Unknown]
  - Headache [Unknown]
  - Musculoskeletal stiffness [Unknown]
  - Pruritus [Unknown]
  - Swelling face [Unknown]
  - Local swelling [Unknown]
  - Pain [Unknown]
  - Chest pain [Unknown]
  - Pyrexia [Unknown]
  - Diarrhoea [Unknown]
  - Eye swelling [Unknown]
  - Lip swelling [Unknown]
  - Neck pain [Unknown]
  - Drug ineffective [Unknown]
